FAERS Safety Report 16752413 (Version 1)
Quarter: 2019Q3

REPORT INFORMATION
  Report Type: Spontaneous
  Country: CA (occurrence: CA)
  Receive Date: 20190828
  Receipt Date: 20190828
  Transmission Date: 20191005
  Serious: Yes (Other)
  Sender: FDA-Public Use
  Company Number: CA-TEVA-2019-CA-1097966

PATIENT
  Age: 54 Year
  Sex: Female
  Weight: 76 kg

DRUGS (13)
  1. ACTEMRA [Suspect]
     Active Substance: TOCILIZUMAB
     Dosage: 672 MILLIGRAM, 1 EVERY 4 WEEKS
     Route: 042
  2. ARAVA [Suspect]
     Active Substance: LEFLUNOMIDE
     Indication: RHEUMATOID ARTHRITIS
     Route: 048
  3. METHOTREXATE. [Suspect]
     Active Substance: METHOTREXATE
     Indication: RHEUMATOID ARTHRITIS
     Route: 065
  4. CIMZIA [Suspect]
     Active Substance: CERTOLIZUMAB PEGOL
     Indication: RHEUMATOID ARTHRITIS
     Dosage: SOLUTION SUBCUTANEOUS
     Route: 058
  5. CYCLOBENZAPRINE HYDROCHLORIDE. [Concomitant]
     Active Substance: CYCLOBENZAPRINE HYDROCHLORIDE
  6. LORAZEPAM. [Concomitant]
     Active Substance: LORAZEPAM
  7. ACETAMINOPHEN. [Concomitant]
     Active Substance: ACETAMINOPHEN
  8. ENBREL [Suspect]
     Active Substance: ETANERCEPT
     Indication: RHEUMATOID ARTHRITIS
     Dosage: 50 MILLIGRAM, 1 EVERY 1 WEEKS
     Route: 058
  9. ORENCIA [Suspect]
     Active Substance: ABATACEPT
     Indication: RHEUMATOID ARTHRITIS
     Route: 042
  10. TYLENOL [Concomitant]
     Active Substance: ACETAMINOPHEN
  11. FOLIC ACID. [Concomitant]
     Active Substance: FOLIC ACID
  12. ACTEMRA [Suspect]
     Active Substance: TOCILIZUMAB
     Indication: RHEUMATOID ARTHRITIS
     Dosage: 336 MILLIGRAM
     Route: 042
  13. GRAVOL [Concomitant]
     Active Substance: DIMENHYDRINATE

REACTIONS (15)
  - Drug ineffective [Not Recovered/Not Resolved]
  - Skin papilloma [Not Recovered/Not Resolved]
  - Nasopharyngitis [Not Recovered/Not Resolved]
  - Nausea [Not Recovered/Not Resolved]
  - Abdominal pain upper [Not Recovered/Not Resolved]
  - Fluid retention [Not Recovered/Not Resolved]
  - Osteomyelitis [Not Recovered/Not Resolved]
  - Nodule [Not Recovered/Not Resolved]
  - Pain [Not Recovered/Not Resolved]
  - Rash [Not Recovered/Not Resolved]
  - Diarrhoea [Not Recovered/Not Resolved]
  - Anaphylactic reaction [Not Recovered/Not Resolved]
  - Malaise [Not Recovered/Not Resolved]
  - Abdominal discomfort [Not Recovered/Not Resolved]
  - Gait disturbance [Not Recovered/Not Resolved]
